FAERS Safety Report 13399207 (Version 1)
Quarter: 2017Q2

REPORT INFORMATION
  Report Type: Other
  Country: DE (occurrence: DE)
  Receive Date: 20170404
  Receipt Date: 20170404
  Transmission Date: 20170830
  Serious: Yes (Other)
  Sender: FDA-Public Use
  Company Number: DE-LUPIN PHARMACEUTICALS INC.-2017-01485

PATIENT
  Age: 1 Day
  Sex: Male
  Weight: 3.01 kg

DRUGS (4)
  1. CEFUROXIM [Concomitant]
     Active Substance: CEFUROXIME
     Indication: URINARY TRACT INFECTION
     Dosage: 500 MG, BID
     Route: 064
     Dates: start: 20160627, end: 20160701
  2. QUETIAPINE. [Suspect]
     Active Substance: QUETIAPINE
     Indication: SCHIZOAFFECTIVE DISORDER
     Dosage: 800 MG, QD
     Route: 064
     Dates: start: 20151228, end: 20161005
  3. FOLIO FORTE [Concomitant]
     Active Substance: FOLIC ACID\VITAMINS
     Indication: PROPHYLAXIS OF NEURAL TUBE DEFECT
     Dosage: 0.8 MG, QD
     Route: 064
     Dates: start: 20151228, end: 20160405
  4. ACTRAPID [Concomitant]
     Active Substance: INSULIN HUMAN
     Indication: GESTATIONAL DIABETES
     Dosage: 4 IU, BID, 8 [I.E./D ]/ 4-4-0 I.E. DAILY
     Route: 064
     Dates: start: 20160627, end: 20161005

REACTIONS (2)
  - Small for dates baby [Recovering/Resolving]
  - Foetal exposure during pregnancy [Unknown]

NARRATIVE: CASE EVENT DATE: 20151228
